FAERS Safety Report 4473135-5 (Version None)
Quarter: 2004Q4

REPORT INFORMATION
  Report Type: 
  Country: None (occurrence: None)
  Receive Date: 20041007
  Receipt Date: 20041007
  Transmission Date: 20050328
  Serious: Yes (Other)
  Sender: FDA-Public Use
  Company Number: None

PATIENT
  Age: 34 Year
  Sex: Female

DRUGS (2)
  1. AVANDIA [Suspect]
     Dosage: TABLET
  2. AMARYL [Suspect]
     Dosage: TABLET

REACTIONS (1)
  - MEDICATION ERROR [None]
